FAERS Safety Report 20683712 (Version 2)
Quarter: 2022Q2

REPORT INFORMATION
  Report Type: Spontaneous
  Country: BR (occurrence: BR)
  Receive Date: 20220407
  Receipt Date: 20220628
  Transmission Date: 20220721
  Serious: Yes (Hospitalization)
  Sender: FDA-Public Use
  Company Number: BR-GLAXOSMITHKLINE-BR2019AMR211784

PATIENT

DRUGS (2)
  1. BENLYSTA [Suspect]
     Active Substance: BELIMUMAB
     Indication: Systemic lupus erythematosus
     Dosage: 120  MG(5 BOXES), Z (MONTHLY)
     Dates: start: 20190806
  2. VANCOMYCIN [Suspect]
     Active Substance: VANCOMYCIN
     Indication: Surgery
     Dosage: UNK

REACTIONS (11)
  - Arterial disorder [Recovering/Resolving]
  - Appendicectomy [Unknown]
  - COVID-19 [Recovered/Resolved]
  - SARS-CoV-2 test positive [Unknown]
  - Chest pain [Recovered/Resolved]
  - Drug hypersensitivity [Recovered/Resolved]
  - Procedural pain [Not Recovered/Not Resolved]
  - Patient isolation [Unknown]
  - Incorrect product administration duration [Unknown]
  - Inappropriate schedule of product administration [Unknown]
  - Product availability issue [Unknown]

NARRATIVE: CASE EVENT DATE: 20200826
